FAERS Safety Report 6903055-5 (Version None)
Quarter: 2010Q3

REPORT INFORMATION
  Report Type: 
  Country: None (occurrence: None)
  Receive Date: 20100803
  Receipt Date: 20080908
  Transmission Date: 20110219
  Serious: Yes (Other)
  Sender: FDA-Public Use
  Company Number: US-PFIZER INC-2008076490

PATIENT
  Sex: Female
  Weight: 72.727 kg

DRUGS (5)
  1. LYRICA [Suspect]
     Indication: FIBROMYALGIA
     Dates: start: 20080601
  2. SYNTHROID [Concomitant]
  3. CLONAZEPAM [Concomitant]
  4. AMBIEN [Concomitant]
  5. PERCOCET [Concomitant]

REACTIONS (3)
  - CONFUSIONAL STATE [None]
  - VISION BLURRED [None]
  - WEIGHT INCREASED [None]
